FAERS Safety Report 21371328 (Version 1)
Quarter: 2022Q3

REPORT INFORMATION
  Report Type: Spontaneous
  Country: US (occurrence: None)
  Receive Date: 20220923
  Receipt Date: 20220923
  Transmission Date: 20221026
  Serious: No
  Sender: FDA-Public Use
  Company Number: 2022A297579

PATIENT
  Age: 28737 Day
  Sex: Female
  Weight: 57.2 kg

DRUGS (1)
  1. PULMICORT TURBUHALER [Suspect]
     Active Substance: BUDESONIDE
     Indication: Asthma
     Dosage: 90 MCG TWO PUFFS ONCE A DAY
     Route: 055
     Dates: start: 20220805

REACTIONS (9)
  - Tongue coated [Unknown]
  - Tongue ulceration [Unknown]
  - Pharyngeal ulceration [Unknown]
  - Gastrooesophageal reflux disease [Unknown]
  - Dysphonia [Unknown]
  - Drug dose omission by device [Unknown]
  - Device delivery system issue [Unknown]
  - Device use issue [Unknown]
  - Product use issue [Unknown]

NARRATIVE: CASE EVENT DATE: 20220805
